FAERS Safety Report 8301472-2 (Version None)
Quarter: 2012Q2

REPORT INFORMATION
  Report Type: 
  Country: None (occurrence: None)
  Receive Date: 20120420
  Receipt Date: 20120413
  Transmission Date: 20120825
  Serious: Yes (Life-Threatening, Hospitalization, Other)
  Sender: FDA-Public Use
  Company Number: PHHY2009JP22845

PATIENT
  Sex: Male

DRUGS (11)
  1. IRSOGLADINE MALEATE [Concomitant]
     Indication: CHRONIC MYELOID LEUKAEMIA
     Dosage: 4 MG, UNK
     Route: 048
  2. URALYT [Concomitant]
     Indication: CHRONIC MYELOID LEUKAEMIA
     Dosage: 2 DF, UNK
     Route: 048
  3. TASIGNA [Suspect]
     Dosage: 200 MG/DAY
     Route: 048
     Dates: start: 20090522, end: 20090813
  4. TASIGNA [Suspect]
     Indication: CHRONIC MYELOID LEUKAEMIA
     Dosage: 400 MG/DAY
     Route: 048
     Dates: start: 20090408, end: 20090507
  5. ALLOPURINOL [Concomitant]
     Indication: CHRONIC MYELOID LEUKAEMIA
     Dosage: 100 MG, UNK
     Route: 048
  6. CARDIOVASCULAR DRUGS [Concomitant]
  7. TASIGNA [Suspect]
     Dosage: 200 MG, DAILY
     Dates: start: 20110722, end: 20110910
  8. PREDNISOLONE [Concomitant]
     Indication: CHRONIC MYELOID LEUKAEMIA
     Dosage: 5 MG, UNK
     Route: 048
  9. TASIGNA [Suspect]
     Dosage: UNK
     Dates: end: 20110116
  10. SUMIFERON [Concomitant]
     Indication: CHRONIC MYELOID LEUKAEMIA
     Dosage: 3 MIU, UNK
     Route: 042
     Dates: start: 20060712, end: 20070206
  11. GASLON [Concomitant]
     Dosage: 4 MG, UNK
     Route: 048

REACTIONS (5)
  - ARRHYTHMIA [None]
  - ATRIAL FIBRILLATION [None]
  - PNEUMONIA [None]
  - ELECTROCARDIOGRAM QT PROLONGED [None]
  - CONDITION AGGRAVATED [None]
